FAERS Safety Report 6706880-9 (Version None)
Quarter: 2010Q2

REPORT INFORMATION
  Report Type: 
  Country: None (occurrence: None)
  Receive Date: 20100430
  Receipt Date: 20100430
  Transmission Date: 20101027
  Serious: Yes (Other)
  Sender: FDA-Public Use
  Company Number: None

PATIENT
  Age: 34 Year
  Sex: Female
  Weight: 72.5755 kg

DRUGS (1)
  1. ZYRTEC-D 12 HOUR [Suspect]
     Indication: HYPERSENSITIVITY
     Dosage: 1 PILL ONCE PO
     Route: 048
     Dates: start: 20100427, end: 20100427

REACTIONS (7)
  - ANGER [None]
  - HEADACHE [None]
  - HEARING IMPAIRED [None]
  - MUSCULAR WEAKNESS [None]
  - PAIN [None]
  - PRODUCT QUALITY ISSUE [None]
  - SINUSITIS [None]
